FAERS Safety Report 20075312 (Version 1)
Quarter: 2021Q4

REPORT INFORMATION
  Report Type: Spontaneous
  Country: IN (occurrence: IN)
  Receive Date: 20211116
  Receipt Date: 20211116
  Transmission Date: 20220303
  Serious: Yes (Hospitalization, Other)
  Sender: FDA-Public Use
  Company Number: IN-COLLEGIUM PHARMACEUTICAL, INC.-2021CGM01180

PATIENT
  Age: 20 Year
  Sex: Male

DRUGS (2)
  1. TAPENTADOL [Suspect]
     Active Substance: TAPENTADOL
     Dosage: ^IR^; 600-800 MG; 4-6 SESSIONS
     Route: 042
  2. TAPENTADOL [Suspect]
     Active Substance: TAPENTADOL
     Dosage: 1000 MG
     Route: 042

REACTIONS (5)
  - Incorrect route of product administration [Recovered/Resolved]
  - Drug dependence [Unknown]
  - Drug withdrawal syndrome [Recovered/Resolved]
  - Seizure [Recovered/Resolved]
  - Overdose [Recovered/Resolved]
